FAERS Safety Report 20145561 (Version 2)
Quarter: 2022Q1

REPORT INFORMATION
  Report Type: Report from Study
  Country: AR (occurrence: AR)
  Receive Date: 20211203
  Receipt Date: 20220120
  Transmission Date: 20220424
  Serious: Yes (Hospitalization)
  Sender: FDA-Public Use
  Company Number: AR-NOVARTISPH-NVSC2021AR271876

PATIENT
  Age: 32 Year
  Sex: Female

DRUGS (1)
  1. GILENYA [Suspect]
     Active Substance: FINGOLIMOD HYDROCHLORIDE
     Indication: Multiple sclerosis
     Dosage: 0.5 MG, QD
     Route: 048
     Dates: start: 20150203

REACTIONS (12)
  - Multiple sclerosis relapse [Not Recovered/Not Resolved]
  - Asthenia [Unknown]
  - Gait disturbance [Unknown]
  - Immunodeficiency [Unknown]
  - Muscle spasms [Unknown]
  - Menstrual disorder [Unknown]
  - Feeling abnormal [Unknown]
  - Limb discomfort [Unknown]
  - Drug ineffective [Unknown]
  - Paraesthesia [Unknown]
  - Vision blurred [Unknown]
  - Memory impairment [Unknown]

NARRATIVE: CASE EVENT DATE: 20211001
